FAERS Safety Report 9518445 (Version 1)
Quarter: 2013Q3

REPORT INFORMATION
  Report Type: Spontaneous
  Country: BR (occurrence: BR)
  Receive Date: 20130912
  Receipt Date: 20130912
  Transmission Date: 20140515
  Serious: Yes (Death, Other)
  Sender: FDA-Public Use
  Company Number: BR-AMGEN-BRASP2013063617

PATIENT
  Age: 66 Year
  Sex: Female
  Weight: 55 kg

DRUGS (9)
  1. ENBREL [Suspect]
     Indication: RHEUMATOID ARTHRITIS
     Dosage: 50 MG, ONCE A  WEEK
     Route: 058
     Dates: start: 201206
  2. LOSARTAN [Concomitant]
     Dosage: UNK UNK, UNK
  3. METFORMIN [Concomitant]
     Dosage: UNK UNK, UNK
  4. INSULIN [Concomitant]
     Dosage: UNK UNK, UNK
  5. OMEPRAZOL                          /00661201/ [Concomitant]
     Dosage: UNK UNK, UNK
  6. VITAMIN B12                        /00056201/ [Concomitant]
     Dosage: UNK UNK, UNK
  7. FOLIC ACID [Concomitant]
     Dosage: UNK UNK, UNK
  8. FUROSEMIDE [Concomitant]
     Dosage: UNK UNK, UNK
  9. SPIRONOLACTONE [Concomitant]
     Dosage: UNK UNK, UNK

REACTIONS (3)
  - Death [Fatal]
  - Fall [Unknown]
  - Femur fracture [Unknown]
